FAERS Safety Report 8966115 (Version 3)
Quarter: 2013Q1

REPORT INFORMATION
  Report Type: Spontaneous
  Country: US (occurrence: US)
  Receive Date: 20121217
  Receipt Date: 20130125
  Transmission Date: 20140127
  Serious: Yes (Other)
  Sender: FDA-Public Use
  Company Number: US-PFIZER INC-2012313673

PATIENT
  Age: 85 Year
  Sex: Female

DRUGS (18)
  1. AMLODIPINE BESILATE [Suspect]
     Dosage: 5 MG, 1X/DAY (TAKE ONE TAB DAILY)
     Route: 048
  2. LORAZEPAM [Suspect]
     Dosage: 1 MG, UNK (TAKE 1 TABLET EVERY 8 HOURS; RPT)
     Route: 048
  3. LEVOTHYROXINE SODIUM [Suspect]
     Dosage: 75 UG, 1X/DAY (TAKE ONE TABLET BY MOUTH ONCE DAILY)
     Route: 048
  4. ROPINIROLE HYDROCHLORIDE [Suspect]
     Dosage: 1 MG, 3X/DAY
     Route: 048
  5. OMEPRAZOLE [Suspect]
     Dosage: 20 MG, 1X/DAY (TAKE ONE CAPSULE ORALLY EVERY DAY)
     Route: 048
  6. MAGNESIUM [Suspect]
     Dosage: 500 MG, 1X/DAY
     Route: 048
  7. CITALOPRAM HYDROBROMIDE [Suspect]
     Dosage: 20 MG, 1X/DAY (TAKE ONE TABLET DAILY)
     Route: 048
  8. SYMBICORT [Suspect]
     Dosage: UNK, 2X/DAY (160-4.5 MCG/ACT 1 PUFFS TWICE DAILY)
     Route: 055
  9. OXCARBAZEPINE [Suspect]
     Dosage: 150 MG TABLET (TAKE 1 TABLET 1 1/2 PO TID)
     Route: 048
  10. HYDROCODONE W/ACETAMINOPHEN [Suspect]
     Dosage: 10-325 MG, EVERY 4 HRS AS NEEDED
     Route: 048
  11. LIDODERM [Suspect]
     Dosage: 5 %, 1X/DAY
  12. VOLTAREN [Suspect]
     Dosage: 1 %, 4X/DAY
     Route: 062
  13. FERROUS SULFATE [Suspect]
     Dosage: 325 MG, 1X/DAY (TAKE ONE TABLET DAILY AS DIRECTED)
     Route: 048
  14. OXYBUTYNIN [Suspect]
     Dosage: 5 MG, UNK
  15. DSS [Suspect]
     Dosage: 250 MG, 1X/DAY (CAP ONCE PO QD)
     Route: 048
  16. CLARITIN [Concomitant]
     Dosage: UNK
  17. TYLENOL [Concomitant]
     Dosage: UNK
  18. IMODIUM [Concomitant]
     Dosage: UNK

REACTIONS (5)
  - Transient ischaemic attack [Unknown]
  - Malaise [Unknown]
  - Fatigue [Unknown]
  - Nausea [Unknown]
  - Accidental overdose [Unknown]
